FAERS Safety Report 4372256-5 (Version None)
Quarter: 2004Q2

REPORT INFORMATION
  Report Type: 
  Country: None (occurrence: None)
  Receive Date: 20040602
  Receipt Date: 20040602
  Transmission Date: 20050107
  Serious: Yes (Hospitalization)
  Sender: FDA-Public Use
  Company Number: None

PATIENT
  Sex: Male
  Weight: 70.4 kg

DRUGS (22)
  1. PREDNISONE [Suspect]
     Indication: LYMPHOMA
     Dosage: 40MG QD DAYS 1-} 14 PO
     Route: 048
     Dates: start: 20040511, end: 20040524
  2. ADRIAMYCIN PFS [Suspect]
     Indication: LYMPHOMA
     Dosage: 58.90 MG DAY 1-8 IV
     Route: 042
     Dates: start: 20040511
  3. ADRIAMYCIN PFS [Suspect]
     Indication: LYMPHOMA
     Dosage: 58.90 MG DAY 1-8 IV
     Route: 042
     Dates: start: 20040518
  4. CYTOXAN [Suspect]
     Indication: LYMPHOMA
     Dosage: 1551.3 MG (D1 + D8) IV
     Route: 042
     Dates: start: 20040511
  5. CYTOXAN [Suspect]
     Indication: LYMPHOMA
     Dosage: 1551.3 MG (D1 + D8) IV
     Route: 042
     Dates: start: 20040518
  6. ETOPOSIDE [Suspect]
     Indication: LYMPHOMA
     Dosage: 827 MG (D1 + D8) IV
     Route: 042
     Dates: start: 20040511
  7. ETOPOSIDE [Suspect]
     Indication: LYMPHOMA
     Dosage: 827 MG (D1 + D8) IV
     Route: 042
     Dates: start: 20040518
  8. PLAVIX [Concomitant]
  9. ASPIRIN [Concomitant]
  10. RAMIPRIL [Concomitant]
  11. ATENOLOL [Concomitant]
  12. NITRO PATCH [Concomitant]
  13. WELLBUTRIN [Concomitant]
  14. ZOLOFT [Concomitant]
  15. PROSCAR [Concomitant]
  16. INSULIN GLARGINE [Concomitant]
  17. GLIPIZIDE [Concomitant]
  18. METFORMIN [Concomitant]
  19. INSULIN LISPRO [Concomitant]
  20. NITROSPRAY [Concomitant]
  21. BACTRIM DS [Concomitant]
  22. NEULASTA [Concomitant]

REACTIONS (4)
  - ANGINA PECTORIS [None]
  - BACK PAIN [None]
  - CORONARY ARTERY OCCLUSION [None]
  - HYPERHIDROSIS [None]
